FAERS Safety Report 16170755 (Version 2)
Quarter: 2019Q2

REPORT INFORMATION
  Report Type: Spontaneous
  Country: KR (occurrence: KR)
  Receive Date: 20190408
  Receipt Date: 20190515
  Transmission Date: 20190711
  Serious: Yes (Hospitalization, Other)
  Sender: FDA-Public Use
  Company Number: KR-009507513-1904KOR001690

PATIENT
  Sex: Male

DRUGS (24)
  1. SMOFKABIVEN [Concomitant]
     Active Substance: AMINO ACIDS\DEXTROSE\ELECTROLYTES NOS\SOYBEAN OIL
     Dosage: QUANTITY 1, DAYS 1
  2. NORPIN INJECTION [Concomitant]
     Dosage: QUANTITY:1, DAYS: 1
  3. TRAMADOL HYDROCHLORIDE. [Concomitant]
     Active Substance: TRAMADOL HYDROCHLORIDE
     Dosage: QUANTITY:5, DAYS: 5
  4. STERILE WATER [Concomitant]
     Active Substance: WATER
     Dosage: QUANTITY 23, DAYS 5
  5. ALIMTA [Concomitant]
     Active Substance: PEMETREXED DISODIUM
     Dosage: UNK
     Dates: start: 20190105
  6. ALOXI [Concomitant]
     Active Substance: PALONOSETRON HYDROCHLORIDE
     Dosage: QUANTITY:1, DAYS: 1
  7. DENOGAN [Concomitant]
     Active Substance: PROPACETAMOL HYDROCHLORIDE
     Dosage: QUANTITY:7, DAYS: 7
  8. SPATAM [Concomitant]
     Dosage: QUANTITY 30, DAYS 30
  9. LUTHIONE [Concomitant]
     Dosage: QUANTITY:1, DAYS: 1
  10. PINE [Concomitant]
     Dosage: QUANTITY:2, DAYS: 2 (5000 IU)
  11. TAGAMET [Concomitant]
     Active Substance: CIMETIDINE
  12. DEXAMETHASONE. [Concomitant]
     Active Substance: DEXAMETHASONE
     Dosage: QUANTITY:1, DAYS: 1
  13. MASI [Concomitant]
     Dosage: QUANTITY:1, DAYS: 1
  14. KEYTRUDA [Suspect]
     Active Substance: PEMBROLIZUMAB
     Dosage: 2 QUANTITY, 1 DAYS
     Dates: start: 201905
  15. PENIRAMIN [Concomitant]
     Dosage: QUANTITY:3, DAYS:3
  16. MVH INJECTION [Concomitant]
     Dosage: QUANTITY:20, DAYS: 10
  17. KEYTRUDA [Suspect]
     Active Substance: PEMBROLIZUMAB
     Indication: LUNG NEOPLASM MALIGNANT
     Dosage: UNK
     Dates: start: 20190105
  18. PROAMIN [Concomitant]
     Dosage: QUANTITY 1, DAYS 1
  19. SODIUM CHLORIDE. [Concomitant]
     Active Substance: SODIUM CHLORIDE
     Dosage: QUANTITY:2, DAYS: 1
  20. KEYTRUDA [Suspect]
     Active Substance: PEMBROLIZUMAB
     Dosage: 2 QUANTITY, 1 DAYS
     Dates: start: 201903
  21. CARBOPLATIN. [Concomitant]
     Active Substance: CARBOPLATIN
     Dosage: UNK
     Dates: start: 20190105
  22. SODIUM CHLORIDE. [Concomitant]
     Active Substance: SODIUM CHLORIDE
     Dosage: QUANTITY 3, DAYS 3
  23. OMAP ONE PERI [Concomitant]
     Dosage: QUANTITY 12, DAYS 12
  24. LASIX [Concomitant]
     Active Substance: FUROSEMIDE
     Dosage: QUANTITY:1, DAYS: 1

REACTIONS (2)
  - Adverse event [Unknown]
  - Oxygen therapy [Unknown]

NARRATIVE: CASE EVENT DATE: 201903
